FAERS Safety Report 25444744 (Version 1)
Quarter: 2025Q2

REPORT INFORMATION
  Report Type: Spontaneous
  Country: US (occurrence: None)
  Receive Date: 20250616
  Receipt Date: 20250616
  Transmission Date: 20250717
  Serious: Yes (Hospitalization)
  Sender: FDA-CTU
  Company Number: None

PATIENT
  Age: 70 Year
  Sex: Female

DRUGS (1)
  1. IBRANCE [Suspect]
     Active Substance: PALBOCICLIB
     Indication: Breast cancer
     Dosage: 125 MG DAILY ORAL
     Route: 048
     Dates: start: 20250215, end: 20250521

REACTIONS (2)
  - Nephropathy toxic [None]
  - Therapy cessation [None]

NARRATIVE: CASE EVENT DATE: 20250216
